FAERS Safety Report 6199360-3 (Version None)
Quarter: 2009Q2

REPORT INFORMATION
  Report Type: 
  Country: None (occurrence: None)
  Receive Date: 20090520
  Receipt Date: 20090520
  Transmission Date: 20091009
  Serious: Yes (Other)
  Sender: FDA-Public Use
  Company Number: None

PATIENT
  Sex: Male
  Weight: 81.6475 kg

DRUGS (1)
  1. TERBINAFINE HCL [Suspect]
     Indication: ONYCHOMYCOSIS
     Dosage: 1 TABLET EVERY DAY PO
     Route: 048
     Dates: start: 20090409, end: 20090512

REACTIONS (9)
  - ANXIETY [None]
  - CHEST PAIN [None]
  - DYSPNOEA [None]
  - ENERGY INCREASED [None]
  - FEAR [None]
  - FEELING JITTERY [None]
  - INSOMNIA [None]
  - IRRITABILITY [None]
  - MOOD ALTERED [None]
